FAERS Safety Report 14193969 (Version 2)
Quarter: 2017Q4

REPORT INFORMATION
  Report Type: Spontaneous
  Country: PL (occurrence: PL)
  Receive Date: 20171116
  Receipt Date: 20171208
  Transmission Date: 20180321
  Serious: Yes (Death, Life-Threatening, Hospitalization, Other)
  Sender: FDA-Public Use
  Company Number: PL-CIPLA LTD.-2017PL20136

PATIENT

DRUGS (21)
  1. EPIRUBICIN [Suspect]
     Active Substance: EPIRUBICIN
     Indication: EXTRA-OSSEOUS EWING^S SARCOMA
     Dosage: UNK (CYCLICAL) CEVAIE CHEMOTHERAPY
     Route: 065
  2. ETOPOSIDE. [Suspect]
     Active Substance: ETOPOSIDE
     Indication: EXTRA-OSSEOUS EWING^S SARCOMA
     Dosage: UNK (CYCLICAL) CEVAIE CHEMOTHERAPY
     Route: 065
  3. AMPHOTERICIN B. [Suspect]
     Active Substance: AMPHOTERICIN B
     Dosage: UNK, QID (6 MG OF AMPHOTERICIN B IN 25 ML OF SALINE)
     Route: 042
  4. TEMOZOLOMIDE. [Suspect]
     Active Substance: TEMOZOLOMIDE
     Indication: EXTRA-OSSEOUS EWING^S SARCOMA
     Dosage: UNK
     Route: 065
  5. DOXORUBICIN [Suspect]
     Active Substance: DOXORUBICIN
     Indication: EXTRA-OSSEOUS EWING^S SARCOMA
     Dosage: UNK (CYCLICAL) VIDE REGIMEN
     Route: 065
  6. VINCRISTINE [Suspect]
     Active Substance: VINCRISTINE
     Dosage: UNK (VAI ADJUVANT CHEMOTHERAPY)
     Route: 065
  7. CASPOFUNGIN [Suspect]
     Active Substance: CASPOFUNGIN
     Indication: FUNGAL INFECTION
     Dosage: UNK
     Route: 042
  8. AMPHOTERICIN B. [Suspect]
     Active Substance: AMPHOTERICIN B
     Indication: FUNGAL INFECTION
     Dosage: UNK
     Route: 042
  9. ACTINOMYCIN D [Suspect]
     Active Substance: DACTINOMYCIN
     Indication: EXTRA-OSSEOUS EWING^S SARCOMA
     Dosage: UNK (CEVAIE CHEMOTHERAPY)
     Route: 065
  10. IRINOTECAN [Suspect]
     Active Substance: IRINOTECAN
     Indication: EXTRA-OSSEOUS EWING^S SARCOMA
     Dosage: UNK (CYCLICAL)
     Route: 065
  11. ETOPOSIDE. [Suspect]
     Active Substance: ETOPOSIDE
     Dosage: UNK (VIDE REGIMEN)
     Route: 065
  12. VINCRISTINE [Suspect]
     Active Substance: VINCRISTINE
     Dosage: UNK
     Route: 065
  13. IFOSFAMIDE. [Suspect]
     Active Substance: IFOSFAMIDE
     Dosage: UNK VAI ADJUVANT CHEMOTHERAPY
     Route: 065
  14. ACTINOMYCIN D [Suspect]
     Active Substance: DACTINOMYCIN
     Dosage: UNK, VAI ADJUVANT CHEMOTHERAPY
     Route: 065
  15. POSACONAZOLE [Suspect]
     Active Substance: POSACONAZOLE
     Indication: FUNGAL INFECTION
     Dosage: UNK
     Route: 065
  16. VINCRISTINE [Suspect]
     Active Substance: VINCRISTINE
     Indication: EXTRA-OSSEOUS EWING^S SARCOMA
     Dosage: UNK (CYCLICAL) CEVAIE CHEMOTHERAPY
     Route: 065
  17. AMPHOTERICIN B. [Suspect]
     Active Substance: AMPHOTERICIN B
     Dosage: 1 MG, UNK 1 MG OF AMPHOTERICIN B/2 L OF SALINE
     Route: 065
  18. CARBOPLATIN. [Suspect]
     Active Substance: CARBOPLATIN
     Indication: EXTRA-OSSEOUS EWING^S SARCOMA
     Dosage: UNK (CYCLICAL) CEVAIE CHEMOTHERAPY
     Route: 065
  19. IFOSFAMIDE. [Suspect]
     Active Substance: IFOSFAMIDE
     Dosage: UNK (VIDE REGIMEN)
     Route: 065
  20. VINCRISTINE [Suspect]
     Active Substance: VINCRISTINE
     Dosage: UNK (VIDE REGIMEN)
     Route: 065
  21. IFOSFAMIDE. [Suspect]
     Active Substance: IFOSFAMIDE
     Indication: EXTRA-OSSEOUS EWING^S SARCOMA
     Dosage: UNK (CEVAIE CHEMOTHERAPY)
     Route: 065

REACTIONS (19)
  - Systemic candida [Fatal]
  - Bone marrow failure [Unknown]
  - Pain in extremity [Unknown]
  - Condition aggravated [Unknown]
  - Cachexia [Unknown]
  - Ileus [Unknown]
  - Gastrointestinal inflammation [Unknown]
  - Neutropenia [Not Recovered/Not Resolved]
  - Decreased appetite [Unknown]
  - Haematuria [Unknown]
  - Pyrexia [Unknown]
  - Gait disturbance [Unknown]
  - Nausea [Unknown]
  - Drug ineffective [Unknown]
  - Gastrointestinal disorder [Unknown]
  - Osteolysis [Unknown]
  - Febrile neutropenia [Unknown]
  - Agranulocytosis [Unknown]
  - Thrombocytopenia [Unknown]
